FAERS Safety Report 13287425 (Version 1)
Quarter: 2017Q1

REPORT INFORMATION
  Report Type: Spontaneous
  Country: FR (occurrence: FR)
  Receive Date: 20170302
  Receipt Date: 20170302
  Transmission Date: 20170428
  Serious: Yes (Hospitalization)
  Sender: FDA-Public Use
  Company Number: FR-INGENUS PHARMACEUTICALS NJ, LLC-ING201702-000088

PATIENT
  Age: 66 Year
  Sex: Male

DRUGS (4)
  1. ALLOPURINOL. [Concomitant]
     Active Substance: ALLOPURINOL
     Indication: GOUT
  2. FLUINDIONE [Concomitant]
     Active Substance: FLUINDIONE
     Indication: ATRIAL FIBRILLATION
  3. PROBENECID AND COLCHICINE [Suspect]
     Active Substance: COLCHICINE\PROBENECID
     Indication: GOUT
  4. METFORMIN [Concomitant]
     Active Substance: METFORMIN HYDROCHLORIDE

REACTIONS (16)
  - Confusional state [Recovered/Resolved]
  - Toxicity to various agents [Recovered/Resolved]
  - Pyrexia [Recovered/Resolved]
  - Enteritis [Recovered/Resolved]
  - Hallucination [Recovered/Resolved]
  - Pancytopenia [Recovered/Resolved]
  - Myocarditis [Unknown]
  - Oedematous pancreatitis [Not Recovered/Not Resolved]
  - Colitis [Not Recovered/Not Resolved]
  - Proteinuria [Unknown]
  - Haematuria [Unknown]
  - Fahr^s disease [Unknown]
  - Alopecia [Unknown]
  - Ascites [Unknown]
  - Renal failure [Recovered/Resolved]
  - Normochromic normocytic anaemia [Recovered/Resolved]
